FAERS Safety Report 8522907-6 (Version None)
Quarter: 2012Q3

REPORT INFORMATION
  Report Type: 
  Country: None (occurrence: None)
  Receive Date: 20120720
  Receipt Date: 20120712
  Transmission Date: 20120928
  Serious: No
  Sender: FDA-Public Use
  Company Number: US-BIOGENIDEC-2012BI025167

PATIENT
  Age: 41 Year
  Sex: Female

DRUGS (2)
  1. DECADRON [Concomitant]
     Indication: PREMEDICATION
     Route: 042
  2. TYSABRI [Suspect]
     Indication: MULTIPLE SCLEROSIS
     Route: 042
     Dates: start: 20120606

REACTIONS (4)
  - GAIT DISTURBANCE [None]
  - MOBILITY DECREASED [None]
  - DIZZINESS [None]
  - HEADACHE [None]
